FAERS Safety Report 21339265 (Version 1)
Quarter: 2022Q3

REPORT INFORMATION
  Report Type: Spontaneous
  Country: FR (occurrence: None)
  Receive Date: 20220915
  Receipt Date: 20220915
  Transmission Date: 20221027
  Serious: Yes (Life-Threatening, Hospitalization)
  Sender: FDA-Public Use
  Company Number: FR-ROCHE-3179914

PATIENT
  Age: 54 Year
  Sex: Male
  Weight: 78 kg

DRUGS (1)
  1. PEGASYS [Suspect]
     Active Substance: PEGINTERFERON ALFA-2A
     Indication: Thrombocytosis
     Dosage: SEMAINE
     Route: 058

REACTIONS (2)
  - Off label use [Unknown]
  - Hypomania [Not Recovered/Not Resolved]

NARRATIVE: CASE EVENT DATE: 20220720
